FAERS Safety Report 8850508 (Version 2)
Quarter: 2012Q4

REPORT INFORMATION
  Report Type: 
  Country: AU (occurrence: AU)
  Receive Date: 20121019
  Receipt Date: 20121026
  Transmission Date: 20130627
  Serious: Yes (Death, Other)
  Sender: FDA-Public Use
  Company Number: AU-B.I. PHARMACEUTICALS,INC./RIDGEFIELD-2012-AU-01777AU

PATIENT
  Age: 83 Year
  Sex: Male
  Weight: 55 kg

DRUGS (21)
  1. PRADAXA [Suspect]
     Indication: CEREBROVASCULAR ACCIDENT PROPHYLAXIS
     Dosage: 75 mg
     Dates: start: 201103
  2. PRADAXA [Suspect]
     Indication: ATRIAL FIBRILLATION
  3. AMIODARONE [Concomitant]
     Dosage: 200 mg
     Route: 048
  4. AVANZA [Concomitant]
     Dosage: 15 mg
  5. FAMOTIDINE [Concomitant]
     Dosage: 40 mg
     Route: 048
  6. HYDROCHLOROTHIAZIDE [Concomitant]
     Dosage: 12.5 mg
     Route: 048
  7. KINSON [Concomitant]
     Dosage: 0.5 NIGHT
  8. LANTUS SOLOSTAR INJECTION [Concomitant]
     Dosage: 6 UNITS
  9. LASIX [Concomitant]
     Dosage: 160 mg
  10. LIPITOR [Concomitant]
     Dosage: 80 mg
  11. NEBILET [Concomitant]
     Dosage: 10 mg
  12. NEO-B12 [Concomitant]
     Dosage: INJECTION
  13. NITROLINGUAL PUMPSPRAY [Concomitant]
     Dosage: 1-2 doses prn
  14. OSMOLAX [Concomitant]
     Dosage: pOWDER FOR ORAL SOLUTION
     Route: 048
  15. SIFROL [Concomitant]
     Dosage: 0.125 mg
  16. SPIRIVA [Concomitant]
     Dosage: 18 mcg
  17. SYMBICORT [Concomitant]
     Dosage: 400/12 POWDER FOR INHALATION 2 BD
  18. TEMAZE [Concomitant]
     Dosage: 10 mg
  19. TRAMAL [Concomitant]
     Dosage: 10 RT
  20. VENTOLIN [Concomitant]
     Dosage: 1-2 q4h prn
  21. FERRO-F [Concomitant]
     Dosage: 1 anz
     Route: 048

REACTIONS (5)
  - Cardiac failure acute [Fatal]
  - Cardiac failure congestive [Fatal]
  - Cardiac failure [Unknown]
  - Renal impairment [Unknown]
  - Underdose [Unknown]
